FAERS Safety Report 17417372 (Version 1)
Quarter: 2020Q1

REPORT INFORMATION
  Report Type: Spontaneous
  Country: US (occurrence: US)
  Receive Date: 20200214
  Receipt Date: 20200214
  Transmission Date: 20200409
  Serious: No
  Sender: FDA-Public Use
  Company Number: US-009507513-2001USA011504

PATIENT
  Age: 33 Year
  Sex: Male

DRUGS (1)
  1. ASMANEX [Suspect]
     Active Substance: MOMETASONE FUROATE
     Indication: ASTHMA
     Dosage: 1 PUFF, QD
     Route: 055
     Dates: start: 20200123

REACTIONS (6)
  - Incorrect dose administered [Unknown]
  - Poor quality device used [Unknown]
  - Asthma [Not Recovered/Not Resolved]
  - Accidental exposure to product [Unknown]
  - Therapeutic product effect incomplete [Not Recovered/Not Resolved]
  - Product quality issue [Unknown]

NARRATIVE: CASE EVENT DATE: 20200123
